FAERS Safety Report 8333892-4 (Version None)
Quarter: 2012Q1

REPORT INFORMATION
  Report Type: 
  Country: None (occurrence: None)
  Receive Date: 20120328
  Receipt Date: 20110408
  Transmission Date: 20120608
  Serious: Yes (Other)
  Sender: FDA-Public Use
  Company Number: PHHY2011US29789

PATIENT
  Sex: Female

DRUGS (1)
  1. VALTURNA [Suspect]
     Indication: HYPERTENSION
     Dates: start: 20100905, end: 20110409

REACTIONS (2)
  - BLOOD CREATININE INCREASED [None]
  - RENAL IMPAIRMENT [None]
